FAERS Safety Report 18423700 (Version 1)
Quarter: 2020Q4

REPORT INFORMATION
  Report Type: Spontaneous
  Country: TR (occurrence: TR)
  Receive Date: 20201024
  Receipt Date: 20201024
  Transmission Date: 20210114
  Serious: Yes (Life-Threatening, Hospitalization, Other)
  Sender: FDA-Public Use
  Company Number: TR-MACLEODS PHARMACEUTICALS US LTD-MAC2020028698

PATIENT

DRUGS (1)
  1. METFORMIN [Suspect]
     Active Substance: METFORMIN HYDROCHLORIDE
     Indication: PRODUCT USED FOR UNKNOWN INDICATION
     Dosage: 100 DOSAGE FORM, SINGLE
     Route: 065

REACTIONS (9)
  - Toxicity to various agents [Unknown]
  - Lactic acidosis [Recovered/Resolved]
  - Agitation [Recovered/Resolved]
  - Sinus bradycardia [Unknown]
  - Memory impairment [Unknown]
  - Suicide attempt [Unknown]
  - Hypotension [Unknown]
  - Intentional overdose [Unknown]
  - Confusional state [Recovered/Resolved]
